FAERS Safety Report 4487706-3 (Version None)
Quarter: 2004Q4

REPORT INFORMATION
  Report Type: 
  Country: None (occurrence: None)
  Receive Date: 20041025
  Receipt Date: 20041013
  Transmission Date: 20050328
  Serious: Yes (Other)
  Sender: FDA-Public Use
  Company Number: 25393

PATIENT
  Age: 21 Year
  Sex: Female

DRUGS (1)
  1. IMIQUIMOD (IMIQUIMOD) [Suspect]
     Indication: CONDYLOMA ACUMINATUM
     Route: 061

REACTIONS (5)
  - CHILLS [None]
  - DYSPNOEA [None]
  - FLUSHING [None]
  - PYREXIA [None]
  - SWELLING FACE [None]
